FAERS Safety Report 5823261-0 (Version None)
Quarter: 2008Q3

REPORT INFORMATION
  Report Type: 
  Country: None (occurrence: None)
  Receive Date: 20080724
  Receipt Date: 20080724
  Transmission Date: 20090109
  Serious: Yes (Hospitalization)
  Sender: FDA-Public Use
  Company Number: None

PATIENT
  Age: 64 Year
  Sex: Female
  Weight: 57.5 kg

DRUGS (17)
  1. SORAFENIB (PROVIDED BY STUDY) [Suspect]
     Indication: BILIARY NEOPLASM
     Dosage: 200MG BID ORAL
     Route: 048
     Dates: start: 20080710, end: 20080717
  2. SORAFENIB (PROVIDED BY STUDY) [Suspect]
     Indication: NEOPLASM MALIGNANT
     Dosage: 200MG BID ORAL
     Route: 048
     Dates: start: 20080710, end: 20080717
  3. OXALIPLATIN [Suspect]
     Indication: BILIARY NEOPLASM
     Dosage: IV 136MG
     Route: 042
     Dates: start: 20080710
  4. OXALIPLATIN [Suspect]
     Indication: NEOPLASM MALIGNANT
     Dosage: IV 136MG
     Route: 042
     Dates: start: 20080710
  5. RANITIDINE HCL [Concomitant]
  6. PREDNISONE [Concomitant]
  7. OXYCONTIN [Concomitant]
  8. OXYCODONE HCL [Concomitant]
  9. WARFARIN SODIUM [Concomitant]
  10. AMBIEN [Concomitant]
  11. PHENERGAN HCL [Concomitant]
  12. LORAZEPAM [Concomitant]
  13. ONDANSETRON [Concomitant]
  14. INDERAL LA [Concomitant]
  15. MAALIDOBEN [Concomitant]
  16. XELODA [Suspect]
     Indication: BILIARY NEOPLASM
     Dosage: 3600MG Q6H X 8
     Dates: start: 20080710, end: 20080712
  17. XELODA [Suspect]
     Indication: NEOPLASM MALIGNANT
     Dosage: 3600MG Q6H X 8
     Dates: start: 20080710, end: 20080712

REACTIONS (6)
  - DEHYDRATION [None]
  - EMOTIONAL DISTRESS [None]
  - GLOSSODYNIA [None]
  - MUCOSAL INFLAMMATION [None]
  - PAIN [None]
  - TONGUE DISORDER [None]
